FAERS Safety Report 5209257-0 (Version None)
Quarter: 2007Q1

REPORT INFORMATION
  Report Type: 
  Country: None (occurrence: None)
  Receive Date: 20070111
  Receipt Date: 20070105
  Transmission Date: 20070707
  Serious: Yes (Death, Hospitalization)
  Sender: FDA-Public Use
  Company Number: 232727

PATIENT
  Age: 56 Year
  Sex: Female

DRUGS (15)
  1. RITUXAN [Suspect]
     Indication: RHEUMATOID ARTHRITIS
     Dosage: 1000 MG, INTRAVENOUS
     Route: 042
     Dates: start: 20060801
  2. RITUXAN [Suspect]
     Indication: RHEUMATOID ARTHRITIS
     Dosage: 1000 MG, INTRAVENOUS
     Route: 042
     Dates: start: 20060815
  3. RITUXAN [Concomitant]
     Dosage: 1000 MG, INTRAVENOUS
     Route: 042
     Dates: start: 20060815
  4. METHOTREXATE [Concomitant]
  5. RELAFEN [Concomitant]
  6. VICODIN (ACETAMINOPHEN, HYDROCHLORIDE BITARTRATE) [Concomitant]
  7. PREDNISONE TAB [Concomitant]
  8. FOSAMAX [Concomitant]
  9. PREMARIN [Concomitant]
  10. ZOLOFT [Concomitant]
  11. SYNTRHOID (LEVOTHYROXINE SODIUM) [Concomitant]
  12. LASIX [Concomitant]
  13. K-DUR 10 [Concomitant]
  14. PREVACID [Concomitant]
  15. LIPITOR [Concomitant]

REACTIONS (7)
  - ACUTE RESPIRATORY DISTRESS SYNDROME [None]
  - BACTERIAL SEPSIS [None]
  - HAEMOPTYSIS [None]
  - MULTI-ORGAN FAILURE [None]
  - PNEUMONIA [None]
  - RENAL FAILURE ACUTE [None]
  - TOXIC SHOCK SYNDROME [None]
